FAERS Safety Report 8512022 (Version 5)
Quarter: 2013Q1

REPORT INFORMATION
  Report Type: Spontaneous
  Country: US (occurrence: US)
  Receive Date: 20120413
  Receipt Date: 20130110
  Transmission Date: 20140127
  Serious: Yes (Hospitalization, Other)
  Sender: FDA-Public Use
  Company Number: US-ASTRAZENECA-2012SE16238

PATIENT
  Age: 78 Year
  Sex: Female

DRUGS (1)
  1. NEXIUM [Suspect]
     Indication: HIATUS HERNIA
     Route: 048

REACTIONS (9)
  - Hernia [Unknown]
  - Gastrointestinal disorder [Unknown]
  - Urinary tract infection [Unknown]
  - Catheter site pain [Unknown]
  - Hiatus hernia [Unknown]
  - Nasopharyngitis [Unknown]
  - Gastric disorder [Unknown]
  - Abdominal pain [Unknown]
  - Drug ineffective [Unknown]
